FAERS Safety Report 12972775 (Version 1)
Quarter: 2016Q4

REPORT INFORMATION
  Report Type: Spontaneous
  Country: US (occurrence: US)
  Receive Date: 20161124
  Receipt Date: 20161124
  Transmission Date: 20170207
  Serious: Yes (Other)
  Sender: FDA-Public Use
  Company Number: US-THE MEDICINES COMPANY-US-MDCO-16-00200

PATIENT
  Age: 64 Year
  Sex: Female
  Weight: 57 kg

DRUGS (1)
  1. BIVALIRUDIN-SANDOZ [Suspect]
     Active Substance: BIVALIRUDIN
     Indication: ANGIOPLASTY
     Route: 040
     Dates: start: 20160407, end: 20160407

REACTIONS (3)
  - Product quality issue [Recovered/Resolved]
  - Off label use [Recovered/Resolved]
  - Coagulation time abnormal [Recovered/Resolved]

NARRATIVE: CASE EVENT DATE: 20160407
